FAERS Safety Report 9672341 (Version 1)
Quarter: 2013Q4

REPORT INFORMATION
  Report Type: Spontaneous
  Country: ES (occurrence: ES)
  Receive Date: 20131106
  Receipt Date: 20131106
  Transmission Date: 20140711
  Serious: Yes (Other)
  Sender: FDA-Public Use
  Company Number: ES-BAYER-2013-133039

PATIENT
  Age: 82 Year
  Sex: Female

DRUGS (11)
  1. ADIRO 300 [Suspect]
     Dosage: 300MG, QD
     Route: 048
     Dates: start: 200602
  2. PLAVIX [Suspect]
     Dosage: 0-1-0
     Route: 048
     Dates: start: 2010
  3. RANITIDINA [Suspect]
     Dosage: 300 MG, QD (0-1-0)
     Route: 048
     Dates: start: 2010
  4. SEGURIL [Suspect]
     Dosage: 40 MG, QD (1-0-0)
     Route: 048
     Dates: start: 2010
  5. BOI-K ASPARTICO [Concomitant]
     Dosage: 1 DF, QD (1-0-0)
  6. SEROPRAM [Concomitant]
     Dosage: 20 MG, QD (1-0-0)
  7. EFFERALGAN [Concomitant]
     Dosage: 1 G, TID (1-1-1)
  8. DUPHALAC [LACTULOSE] [Concomitant]
     Route: 048
  9. VENTOLIN [Concomitant]
     Dosage: 200 ?G, BID (2-0-2)
     Route: 055
  10. GRANOCYTE [Concomitant]
  11. URBASON [Concomitant]

REACTIONS (1)
  - Agranulocytosis [Not Recovered/Not Resolved]
